FAERS Safety Report 19582269 (Version 1)
Quarter: 2021Q3

REPORT INFORMATION
  Report Type: Spontaneous
  Country: US (occurrence: US)
  Receive Date: 20210719
  Receipt Date: 20210719
  Transmission Date: 20211014
  Serious: No
  Sender: FDA-Public Use
  Company Number: US-GALDERMA-US2021013018

PATIENT

DRUGS (4)
  1. PROACTIV GREEN TEA MOISTURIZER [Concomitant]
     Active Substance: COSMETICS
     Indication: ACNE
     Dosage: 2 OR MORE TIMES A DAY, 1 DOSAGE FORM
     Route: 061
     Dates: start: 202103, end: 202103
  2. PROACTIV MD DAILY OIL CONTROL SPF 30 [Suspect]
     Active Substance: AVOBENZONE\OCTISALATE\OCTOCRYLENE
     Indication: ACNE
     Dosage: CUTANEOUS SOLUTION, 2 OR MORE TIMES A DAY
     Route: 061
     Dates: start: 202103, end: 202103
  3. PROACTIV MD ADAPALENE ACNE TREATMENT [Suspect]
     Active Substance: ADAPALENE
     Indication: ACNE
     Dosage: 2 OR MORE TIMES A DAY, 1 DOSAGE FORM
     Route: 061
     Dates: start: 202103, end: 202103
  4. PROACTIV MD DEEP CLEANSING FACE WASH [Concomitant]
     Active Substance: COSMETICS
     Indication: ACNE
     Dosage: 2 OR MORE TIMES A DAY, 1 DOSAGE FORM
     Route: 061
     Dates: start: 202103, end: 202103

REACTIONS (7)
  - Erythema [Recovered/Resolved]
  - Inappropriate schedule of product administration [Recovered/Resolved]
  - Product use issue [Recovered/Resolved]
  - Skin irritation [Recovered/Resolved]
  - Acne [Recovered/Resolved]
  - Skin burning sensation [Recovered/Resolved]
  - Overdose [Recovered/Resolved]

NARRATIVE: CASE EVENT DATE: 202103
